FAERS Safety Report 8373922-7 (Version None)
Quarter: 2012Q2

REPORT INFORMATION
  Report Type: 
  Country: None (occurrence: None)
  Receive Date: 20120521
  Receipt Date: 20120517
  Transmission Date: 20120825
  Serious: Yes (Death)
  Sender: FDA-Public Use
  Company Number: IN-ROCHE-1070286

PATIENT
  Sex: Male

DRUGS (7)
  1. MIRCERA [Suspect]
     Dates: start: 20120110
  2. MIRCERA [Suspect]
     Dates: start: 20110404
  3. MIRCERA [Suspect]
     Dates: start: 20111217
  4. MIRCERA [Suspect]
     Dates: start: 20120307
  5. MIRCERA [Suspect]
     Indication: ANAEMIA
     Dates: start: 20111115
  6. MIRCERA [Suspect]
     Dates: start: 20111130
  7. MIRCERA [Suspect]
     Dates: start: 20120207

REACTIONS (1)
  - DEATH [None]
